FAERS Safety Report 9945246 (Version 1)
Quarter: 2014Q1

REPORT INFORMATION
  Report Type: Report from Study
  Country: US (occurrence: US)
  Receive Date: 20140303
  Receipt Date: 20140303
  Transmission Date: 20141002
  Serious: No
  Sender: FDA-Public Use
  Company Number: US-ABBVIE-13P-163-1055419-00

PATIENT
  Age: 70 Year
  Sex: Male

DRUGS (9)
  1. HUMIRA [Suspect]
     Indication: COLITIS ULCERATIVE
     Dates: start: 201211
  2. RAPAFLO [Concomitant]
     Indication: PROSTATIC DISORDER
     Dosage: 1 HOUR BEFORE SLEEP
  3. NEXIUM [Concomitant]
     Indication: GASTROOESOPHAGEAL REFLUX DISEASE
  4. MULTIPLE VITAMIN CENTRUM SILVER [Concomitant]
     Indication: VITAMIN SUPPLEMENTATION
     Dosage: DAILY
  5. VITAMIN D [Concomitant]
     Indication: VITAMIN SUPPLEMENTATION
     Dosage: DAILY
  6. LEVOQUIN [Concomitant]
     Indication: PYREXIA
     Dosage: 1 TABLET DAILY X 7 DAYS
     Dates: start: 20130221
  7. LEVOQUIN [Concomitant]
     Indication: WHEEZING
  8. LEVOQUIN [Concomitant]
     Indication: NASAL CONGESTION
  9. SUPARTS [Concomitant]
     Indication: OSTEOARTHRITIS
     Dosage: SERIES OF 5: SCHEDULED FOR 26 FEB, 04 MAR, 09 MAR AND 14 MAR 2013
     Dates: start: 20130221

REACTIONS (6)
  - Fatigue [Not Recovered/Not Resolved]
  - Pyrexia [Not Recovered/Not Resolved]
  - Dyspnoea [Not Recovered/Not Resolved]
  - Wheezing [Not Recovered/Not Resolved]
  - Influenza like illness [Not Recovered/Not Resolved]
  - Arthralgia [Not Recovered/Not Resolved]
